FAERS Safety Report 7391073-5 (Version None)
Quarter: 2011Q1

REPORT INFORMATION
  Report Type: 
  Country: None (occurrence: None)
  Receive Date: 20110324
  Receipt Date: 20101123
  Transmission Date: 20110831
  Serious: Yes (Other)
  Sender: FDA-Public Use
  Company Number: HA10-290-AE

PATIENT
  Age: 62 Year
  Sex: Male
  Weight: 99.7913 kg

DRUGS (1)
  1. SULFAMETHOXAZOLE AND TRIMETHOPRIM [Suspect]
     Indication: FOREIGN BODY
     Dosage: 1 TABLET BID, ORAL
     Route: 048
     Dates: start: 20100901, end: 20101104

REACTIONS (8)
  - HYPERHIDROSIS [None]
  - PRURITUS [None]
  - CHEST PAIN [None]
  - HEART RATE DECREASED [None]
  - DIABETES MELLITUS [None]
  - ASTHENIA [None]
  - CHEST DISCOMFORT [None]
  - LOSS OF CONSCIOUSNESS [None]
